FAERS Safety Report 10155054 (Version 1)
Quarter: 2014Q2

REPORT INFORMATION
  Report Type: Spontaneous
  Country: FR (occurrence: FR)
  Receive Date: 20140506
  Receipt Date: 20140506
  Transmission Date: 20141212
  Serious: Yes (Hospitalization)
  Sender: FDA-Public Use
  Company Number: FR-PFIZER INC-2014120296

PATIENT
  Age: 35 Year
  Sex: Female

DRUGS (17)
  1. DOXORUBICIN HCL [Suspect]
     Indication: PRIMARY MEDIASTINAL LARGE B-CELL LYMPHOMA
     Dosage: 75 MG/M2, ON DAY 1
     Dates: start: 201401, end: 20140217
  2. SOLU-MEDROL [Suspect]
     Indication: PRIMARY MEDIASTINAL LARGE B-CELL LYMPHOMA
     Dosage: 60 MG/M2, ON DAY 1
     Dates: start: 201401, end: 20140217
  3. METHOTREXATE [Suspect]
     Indication: PRIMARY MEDIASTINAL LARGE B-CELL LYMPHOMA
     Dosage: 15 MG, DAILY
     Route: 037
     Dates: start: 201401, end: 20140217
  4. CYCLOPHOSPHAMIDE [Suspect]
     Indication: PRIMARY MEDIASTINAL LARGE B-CELL LYMPHOMA
     Dosage: 1200 MG/M2, ON DAY 1
     Dates: start: 201401, end: 20140217
  5. RITUXIMAB [Suspect]
     Indication: PRIMARY MEDIASTINAL LARGE B-CELL LYMPHOMA
     Dosage: 375 MG/M2, ON DAY 1
     Dates: start: 201401, end: 20140217
  6. VINDESINE SULFATE [Suspect]
     Indication: PRIMARY MEDIASTINAL LARGE B-CELL LYMPHOMA
     Dosage: 2 MG/M2, ON DAY 1
     Dates: start: 201401, end: 20140217
  7. BLEOMYCIN [Suspect]
     Indication: PRIMARY MEDIASTINAL LARGE B-CELL LYMPHOMA
     Dosage: 10 MG, ON DAY 1
     Dates: start: 201401, end: 20140217
  8. CORTANCYL [Suspect]
     Indication: PRIMARY MEDIASTINAL LARGE B-CELL LYMPHOMA
     Dosage: 60 MG, ON DAY 2
     Dates: start: 201401, end: 20140217
  9. ZELITREX [Concomitant]
     Dosage: 500 MG, 2X/DAY
     Route: 048
  10. LEDERFOLIN [Concomitant]
     Dosage: 25 MG, WEEKLY
     Route: 048
  11. BACTRIM FORTE [Concomitant]
     Dosage: 1 DF, 3X/WEEK
     Route: 048
  12. INNOHEP [Concomitant]
     Dosage: 0.8 ML, 1X/DAY
     Route: 058
  13. DAFALGAN [Concomitant]
     Indication: PAIN
     Dosage: UNK
     Route: 048
  14. ALLOPURINOL [Concomitant]
     Dosage: 300 MG, 1X/DAY
     Route: 048
  15. LYSANXIA [Concomitant]
     Dosage: UNK
     Route: 048
  16. VOGALENE [Concomitant]
     Indication: VOMITING
     Dosage: UNK
     Dates: start: 20140218
  17. ZOPHREN [Concomitant]
     Indication: VOMITING
     Dosage: UNK
     Route: 048
     Dates: start: 20140218

REACTIONS (4)
  - Haematemesis [Recovered/Resolved]
  - Melaena [Recovered/Resolved]
  - Vomiting [Recovered/Resolved]
  - Mallory-Weiss syndrome [Recovered/Resolved]
